FAERS Safety Report 10952977 (Version 1)
Quarter: 2015Q1

REPORT INFORMATION
  Report Type: Spontaneous
  Country: US (occurrence: US)
  Receive Date: 20150325
  Receipt Date: 20150325
  Transmission Date: 20150721
  Serious: No
  Sender: FDA-Public Use
  Company Number: US-CELGENEUS-USA-2015030603

PATIENT
  Age: 58 Year
  Sex: Male

DRUGS (19)
  1. COAL TAR. [Concomitant]
     Active Substance: COAL TAR
     Indication: PRODUCT USED FOR UNKNOWN INDICATION
     Route: 065
     Dates: start: 20150126
  2. AMOXICILLIN. [Concomitant]
     Active Substance: AMOXICILLIN
     Indication: PRODUCT USED FOR UNKNOWN INDICATION
     Dosage: 20 PERCENT
     Route: 048
     Dates: start: 20150112
  3. NOVOLOG [Concomitant]
     Active Substance: INSULIN ASPART
     Indication: PRODUCT USED FOR UNKNOWN INDICATION
     Dosage: 5X3 ML
     Route: 050
     Dates: start: 20150108
  4. ADVAIR DISKUS [Concomitant]
     Active Substance: FLUTICASONE PROPIONATE\SALMETEROL XINAFOATE
     Indication: PRODUCT USED FOR UNKNOWN INDICATION
     Dosage: 250/50 MCG
     Route: 055
     Dates: start: 20140416
  5. B-D PEN [Concomitant]
     Indication: PRODUCT USED FOR UNKNOWN INDICATION
     Dosage: 32G X 4MM
     Route: 050
     Dates: start: 20150215
  6. ISOSORBIDE MONONITRATE. [Concomitant]
     Active Substance: ISOSORBIDE MONONITRATE
     Indication: PRODUCT USED FOR UNKNOWN INDICATION
     Route: 065
     Dates: start: 20130802
  7. NOVOLOG [Concomitant]
     Active Substance: INSULIN ASPART
     Route: 050
     Dates: start: 20150107
  8. CARVEDILOL. [Concomitant]
     Active Substance: CARVEDILOL
     Indication: PRODUCT USED FOR UNKNOWN INDICATION
     Route: 048
     Dates: start: 20150302
  9. ASPIRIN. [Concomitant]
     Active Substance: ASPIRIN
     Indication: PRODUCT USED FOR UNKNOWN INDICATION
     Route: 048
     Dates: start: 20150209
  10. LANTUS SOLOSTAR [Concomitant]
     Active Substance: INSULIN GLARGINE
     Indication: PRODUCT USED FOR UNKNOWN INDICATION
     Dosage: 6.25 MILLIGRAM
     Route: 050
     Dates: start: 20150228
  11. LANTUS SOLOSTAR [Concomitant]
     Active Substance: INSULIN GLARGINE
     Dosage: 10 MILLIGRAM
     Route: 050
     Dates: start: 20150107
  12. ASPIRIN. [Concomitant]
     Active Substance: ASPIRIN
     Route: 048
  13. EFFIENT [Concomitant]
     Active Substance: PRASUGREL HYDROCHLORIDE
     Indication: PRODUCT USED FOR UNKNOWN INDICATION
     Dosage: 40 MILLIGRAM
     Route: 048
     Dates: start: 20150107
  14. ATORVASTATIN [Concomitant]
     Active Substance: ATORVASTATIN
     Indication: PRODUCT USED FOR UNKNOWN INDICATION
     Dosage: 1000 MILLIGRAM
     Route: 048
     Dates: start: 20141221
  15. BYSTOLIC [Concomitant]
     Active Substance: NEBIVOLOL HYDROCHLORIDE
     Indication: PRODUCT USED FOR UNKNOWN INDICATION
     Dosage: .005 PERCENT
     Route: 048
     Dates: start: 20141201
  16. OTEZLA [Suspect]
     Active Substance: APREMILAST
     Indication: PSORIATIC ARTHROPATHY
     Dosage: 30 MILLIGRAM
     Route: 048
     Dates: start: 20150220
  17. RANEXA [Concomitant]
     Active Substance: RANOLAZINE
     Indication: PRODUCT USED FOR UNKNOWN INDICATION
     Dosage: 5 MILLIGRAM
     Route: 048
     Dates: start: 20141216
  18. NITROSTAT [Concomitant]
     Active Substance: NITROGLYCERIN
     Indication: PRODUCT USED FOR UNKNOWN INDICATION
     Route: 065
     Dates: start: 20150107
  19. CALCIPOTRIENE. [Concomitant]
     Active Substance: CALCIPOTRIENE
     Indication: PRODUCT USED FOR UNKNOWN INDICATION
     Route: 061
     Dates: start: 20141013

REACTIONS (2)
  - Depression [Not Recovered/Not Resolved]
  - Anxiety [Not Recovered/Not Resolved]

NARRATIVE: CASE EVENT DATE: 201502
